FAERS Safety Report 5852234-7 (Version None)
Quarter: 2008Q3

REPORT INFORMATION
  Report Type: 
  Country: None (occurrence: None)
  Receive Date: 20080821
  Receipt Date: 20080820
  Transmission Date: 20090109
  Serious: Yes (Death)
  Sender: FDA-Public Use
  Company Number: GB-BRISTOL-MYERS SQUIBB COMPANY-14257414

PATIENT
  Age: 86 Year
  Sex: Male
  Weight: 79 kg

DRUGS (9)
  1. ABILIFY [Suspect]
     Indication: DEMENTIA
     Dosage: 1 DOSAGEFORM= 1 TO 5MG DAILY. REDUCED TO 1MG DAILY ON 07APR08.TITRATED TO 4MG DAILY.
     Route: 048
     Dates: start: 20080215, end: 20080407
  2. MESALAMINE [Concomitant]
     Indication: COLITIS ULCERATIVE
     Route: 048
     Dates: end: 20080402
  3. DOXYCYCLINE [Concomitant]
     Indication: SKIN DISORDER
     Route: 048
     Dates: end: 20080401
  4. MIRTAZAPINE [Concomitant]
     Indication: DEPRESSION
     Route: 048
     Dates: start: 20071101, end: 20080401
  5. HYDROXOCOBALAMIN [Concomitant]
     Indication: VITAMIN B12 DEFICIENCY
     Route: 030
     Dates: start: 20080217
  6. CHLORPROMAZINE [Concomitant]
     Indication: DELUSION
     Route: 048
     Dates: start: 20080130, end: 20080305
  7. CHLORPROMAZINE [Concomitant]
     Indication: AGGRESSION
     Route: 048
     Dates: start: 20080130, end: 20080305
  8. QUETIAPINE [Concomitant]
     Indication: DELUSION
     Dosage: 1 DF= 100 TO 250 MG
     Route: 048
     Dates: start: 20080103, end: 20080130
  9. QUETIAPINE [Concomitant]
     Indication: AGGRESSION
     Dosage: 1 DF= 100 TO 250 MG
     Route: 048
     Dates: start: 20080103, end: 20080130

REACTIONS (4)
  - ARTERIOSCLEROSIS [None]
  - DECREASED APPETITE [None]
  - PYREXIA [None]
  - SEDATION [None]
